FAERS Safety Report 9024322 (Version 1)
Quarter: 2013Q1

REPORT INFORMATION
  Report Type: Spontaneous
  Country: FR (occurrence: FR)
  Receive Date: 20130121
  Receipt Date: 20130121
  Transmission Date: 20140127
  Serious: Yes (Hospitalization, Other)
  Sender: FDA-Public Use
  Company Number: PHHY2013FR004855

PATIENT
  Age: 63 Year
  Sex: Female

DRUGS (1)
  1. ZOMETA [Suspect]
     Indication: HYPERCALCAEMIA
     Dosage: 4 MG, UNK
     Route: 042
     Dates: start: 20121026, end: 20121026

REACTIONS (7)
  - Renal tubular necrosis [Recovering/Resolving]
  - Renal failure acute [Recovered/Resolved]
  - Oliguria [Recovered/Resolved]
  - Blood creatinine increased [Unknown]
  - Proteinuria [Unknown]
  - Haematuria [Unknown]
  - Polyuria [Unknown]
